FAERS Safety Report 18075184 (Version 1)
Quarter: 2020Q3

REPORT INFORMATION
  Report Type: Spontaneous
  Country: US (occurrence: US)
  Receive Date: 20200727
  Receipt Date: 20200727
  Transmission Date: 20201103
  Serious: No
  Sender: FDA-Public Use
  Company Number: US-ABBVIE-19K-163-3197867-00

PATIENT
  Age: 72 Year
  Sex: Female

DRUGS (2)
  1. SYNTHROID [Suspect]
     Active Substance: LEVOTHYROXINE SODIUM
     Route: 048
  2. SYNTHROID [Suspect]
     Active Substance: LEVOTHYROXINE SODIUM
     Indication: PRODUCT USED FOR UNKNOWN INDICATION
     Route: 048

REACTIONS (4)
  - Product physical issue [Unknown]
  - Rash [Not Recovered/Not Resolved]
  - Product packaging issue [Unknown]
  - Product label issue [Unknown]

NARRATIVE: CASE EVENT DATE: 20191204
